FAERS Safety Report 6148278-0 (Version None)
Quarter: 2009Q2

REPORT INFORMATION
  Report Type: 
  Country: None (occurrence: None)
  Receive Date: 20090408
  Receipt Date: 20090331
  Transmission Date: 20091009
  Serious: Yes (Other)
  Sender: FDA-Public Use
  Company Number: US-ELI_LILLY_AND_COMPANY-US200903007819

PATIENT
  Sex: Male

DRUGS (8)
  1. HUMALOG MIX 75/25 [Suspect]
     Dosage: 50 U, EACH MORNING
  2. HUMALOG MIX 75/25 [Suspect]
     Dosage: 20 U, OTHER
  3. HUMALOG MIX 75/25 [Suspect]
     Dosage: 40 U, EACH EVENING
  4. ARICEPT [Concomitant]
  5. HYZAAR [Concomitant]
  6. DOXAZOSIN MESYLATE [Concomitant]
  7. LASIX [Concomitant]
  8. POTASSIUM CHLORIDE [Concomitant]

REACTIONS (4)
  - BLOOD GLUCOSE INCREASED [None]
  - CATARACT [None]
  - DEAFNESS [None]
  - VISUAL ACUITY REDUCED [None]
